FAERS Safety Report 8813746 (Version 2)
Quarter: 2015Q2

REPORT INFORMATION
  Report Type: Report from Study
  Country: US (occurrence: US)
  Receive Date: 20120928
  Receipt Date: 20150409
  Transmission Date: 20150821
  Serious: Yes (Death)
  Sender: FDA-Public Use
  Company Number: US-ROCHE-1122964

PATIENT
  Age: 41 Year
  Sex: Female

DRUGS (9)
  1. DECADRON [Concomitant]
     Active Substance: DEXAMETHASONE
     Route: 042
  2. NAVELBINE [Concomitant]
     Active Substance: VINORELBINE TARTRATE
     Route: 042
  3. ZOMETA [Concomitant]
     Active Substance: ZOLEDRONIC ACID
  4. NEUPOGEN [Concomitant]
     Active Substance: FILGRASTIM
     Route: 065
  5. ATIVAN [Concomitant]
     Active Substance: LORAZEPAM
  6. ARANESP [Concomitant]
     Active Substance: DARBEPOETIN ALFA
     Route: 058
  7. ANZEMET [Concomitant]
     Active Substance: DOLASETRON MESYLATE
     Route: 042
  8. HERCEPTIN [Suspect]
     Active Substance: TRASTUZUMAB
     Indication: BREAST CANCER FEMALE
     Route: 042
     Dates: start: 20010108
  9. ARANESP [Concomitant]
     Active Substance: DARBEPOETIN ALFA
     Route: 058

REACTIONS (3)
  - Asthenia [Unknown]
  - Fatigue [Unknown]
  - Death [Fatal]

NARRATIVE: CASE EVENT DATE: 200503
